FAERS Safety Report 24936625 (Version 2)
Quarter: 2025Q1

REPORT INFORMATION
  Report Type: Spontaneous
  Country: JP (occurrence: JP)
  Receive Date: 20250206
  Receipt Date: 20250210
  Transmission Date: 20250409
  Serious: Yes (Hospitalization)
  Sender: PFIZER
  Company Number: JP-MLMSERVICE-20250124-PI373871-00272-1

PATIENT
  Age: 31 Year
  Sex: Female

DRUGS (2)
  1. MEDROXYPROGESTERONE ACETATE [Suspect]
     Active Substance: MEDROXYPROGESTERONE ACETATE
     Dosage: 600 MG, 1X/DAY
  2. ASPIRIN [Concomitant]
     Active Substance: ASPIRIN
     Indication: Thrombosis prophylaxis

REACTIONS (3)
  - Endometrial adenocarcinoma [Recovered/Resolved]
  - Neoplasm recurrence [Recovered/Resolved]
  - Metastases to lymph nodes [Recovered/Resolved]
